FAERS Safety Report 6014093-1 (Version None)
Quarter: 2008Q4

REPORT INFORMATION
  Report Type: 
  Country: None (occurrence: None)
  Receive Date: 20081219
  Receipt Date: 20071126
  Transmission Date: 20090506
  Serious: No
  Sender: FDA-Public Use
  Company Number: A0697323A

PATIENT
  Age: 70 Year
  Sex: Male

DRUGS (2)
  1. ANDRODERM [Suspect]
     Indication: ANDROGEN REPLACEMENT THERAPY
     Dosage: 2.5MG PER DAY
     Route: 062
  2. AVODART [Suspect]
     Dosage: .5MG PER DAY
     Route: 048
     Dates: start: 20070501

REACTIONS (2)
  - ANORGASMIA [None]
  - DRUG INTERACTION [None]
